FAERS Safety Report 19093251 (Version 1)
Quarter: 2021Q2

REPORT INFORMATION
  Report Type: Spontaneous
  Country: NL (occurrence: NL)
  Receive Date: 20210405
  Receipt Date: 20210405
  Transmission Date: 20210717
  Serious: Yes (Hospitalization)
  Sender: FDA-Public Use
  Company Number: NL-TEVA-2021-NL-1897421

PATIENT
  Age: 83 Year
  Sex: Female
  Weight: 70.7 kg

DRUGS (16)
  1. FENPROCOUMON TABLET 3MG / BRAND NAME NOT SPECIFIED [Concomitant]
     Dosage: THERAPY START DATE ASKU, THERAPY END DATE ASKU, 3 MG (MILLIGRAM)
  2. TEMAZEPAM CAPSULE 10MG / BRAND NAME NOT SPECIFIED [Concomitant]
     Active Substance: TEMAZEPAM
     Dosage: THERAPY START DATE ASKU, THERAPY END DATE ASKU, 10 MG
  3. CIPROFLOXACINE TABLET 500MG / BRAND NAME NOT SPECIFIED [Suspect]
     Active Substance: CIPROFLOXACIN
     Indication: DEVICE RELATED INFECTION
     Dosage: 1000 MILLIGRAM DAILY;
     Dates: start: 20210303, end: 20210309
  4. PANTOPRAZOL TABLET MSR 40MG / BRAND NAME NOT SPECIFIED [Concomitant]
     Active Substance: PANTOPRAZOLE
     Dosage: THERAPY START DATE ASKU, THERAPY END DATE ASKU, 40 MG
  5. METOPROLOL TABLET MGA  50MG (SUCCINAAT) / BRAND NAME NOT SPECIFIED [Concomitant]
     Active Substance: METOPROLOL SUCCINATE
     Dosage: THERAPY START DATE ASKU, THERAPY END DATE ASKU, 50 MG (MILLIGRAM)
  6. AMIODARON TABLET 200MG / BRAND NAME NOT SPECIFIED [Concomitant]
     Dosage: THERAPY START DATE ASKU, THERAPY END DATE ASKU, 200 MG (MILLIGRAM)
  7. FUROSEMIDE INJECTIEVLST 10MG/ML / BRAND NAME NOT SPECIFIED [Concomitant]
     Dosage: 10 MG/ML, THERAPY START DATE ASKU, THERAPY END DATE ASKU
  8. SEVELAMEER TABLET 800MG (CARBONAAT) / BRAND NAME NOT SPECIFIED [Concomitant]
     Active Substance: SEVELAMER
     Dosage: THERAPY START DATE ASKU, THERAPY END DATE ASKU, 800 MG
  9. ATORVASTATINE TABLET 20MG / BRAND NAME NOT SPECIFIED [Concomitant]
     Active Substance: ATORVASTATIN
     Dosage: THERAPY START DATE ASKU, THERAPY END DATE ASKU, 20 MG (MILLIGRAM)
  10. RIFAMPICINE CAPSULE 300MG / BRAND NAME NOT SPECIFIED [Suspect]
     Active Substance: RIFAMPIN
     Indication: DEVICE RELATED INFECTION
     Dosage: 2 DOSAGE FORMS DAILY;
     Dates: start: 20210303, end: 20210303
  11. ACETYLSALICYLZUUR TABLET  80MG / BRAND NAME NOT SPECIFIED [Concomitant]
     Active Substance: ASPIRIN
     Dosage: THERAPY START DATE ASKU, THERAPY END DATE ASKU, 80 MG (MILLIGRAM)
  12. CEFUROXIM INJECTIEPOEDER  750MG / BRAND NAME NOT SPECIFIED [Concomitant]
     Dosage: THERAPY START DATE ASKU, THERAPY END DATE ASKU, 750 MG (MILLIGRAM)
  13. MORFINE INFVLST  10MG/ML / BRAND NAME NOT SPECIFIED [Concomitant]
     Dosage: 10 MG/ML ,THERAPY START DATE ASKU, THERAPY END DATE ASKU
  14. EZETIMIB TABLET 10MG / BRAND NAME NOT SPECIFIED [Concomitant]
     Active Substance: EZETIMIBE
     Dosage: 10MG, THERAPY START DATE ASKU, THERAPY END DATE ASKU
  15. AMLODIPINE TABLET   5MG / BRAND NAME NOT SPECIFIED [Concomitant]
     Active Substance: AMLODIPINE BESYLATE
     Dosage: THERAPY START DATE ASKU, THERAPY END DATE ASKU, 5 MG (MILLIGRAM)
  16. METOCLOPRAMIDE INJVLST  5MG/ML (HCL) / BRAND NAME NOT SPECIFIED [Concomitant]
     Dosage: THERAPY START DATE ASKU, THERAPY END DATE ASKU, 5 MG / ML

REACTIONS (1)
  - Renal impairment [Not Recovered/Not Resolved]

NARRATIVE: CASE EVENT DATE: 20210309
